FAERS Safety Report 5512737-1 (Version None)
Quarter: 2007Q4

REPORT INFORMATION
  Report Type: 
  Country: None (occurrence: None)
  Receive Date: 20071112
  Receipt Date: 20071103
  Transmission Date: 20080405
  Serious: Yes (Other)
  Sender: FDA-Public Use
  Company Number: GB-ROCHE-529617

PATIENT
  Age: 64 Year
  Sex: Female
  Weight: 102 kg

DRUGS (2)
  1. ORLISTAT [Suspect]
     Indication: OBESITY
     Route: 048
     Dates: start: 20070611, end: 20071021
  2. PIZOTIFEN [Concomitant]
     Indication: MIGRAINE
     Route: 048
     Dates: start: 20050101

REACTIONS (1)
  - BREAST CANCER [None]
